FAERS Safety Report 7567879-6 (Version None)
Quarter: 2011Q2

REPORT INFORMATION
  Report Type: 
  Country: None (occurrence: None)
  Receive Date: 20110623
  Receipt Date: 20110615
  Transmission Date: 20111010
  Serious: Yes (Other)
  Sender: FDA-Public Use
  Company Number: GB-ASTELLAS-2011US003179

PATIENT
  Age: 70 Year
  Sex: Male

DRUGS (1)
  1. TARCEVA [Suspect]
     Indication: LUNG ADENOCARCINOMA
     Dosage: 150 MG, UID/QD
     Route: 048

REACTIONS (6)
  - TRICHIASIS [None]
  - TRICHOMEGALY [None]
  - KERATITIS BACTERIAL [None]
  - VISUAL ACUITY REDUCED [None]
  - ENTROPION [None]
  - ULCERATIVE KERATITIS [None]
